FAERS Safety Report 7448728-3 (Version None)
Quarter: 2011Q2

REPORT INFORMATION
  Report Type: 
  Country: None (occurrence: None)
  Receive Date: 20110429
  Receipt Date: 20100713
  Transmission Date: 20111010
  Serious: No
  Sender: FDA-Public Use
  Company Number: US-ASTRAZENECA-2010SE32703

PATIENT
  Age: 688 Month
  Sex: Female
  Weight: 83.9 kg

DRUGS (2)
  1. CRESTOR [Concomitant]
  2. NEXIUM [Suspect]
     Route: 048
     Dates: start: 20100301

REACTIONS (1)
  - BLOOD GLUCOSE INCREASED [None]
